FAERS Safety Report 19471818 (Version 3)
Quarter: 2021Q3

REPORT INFORMATION
  Report Type: Report from Study
  Country: US (occurrence: US)
  Receive Date: 20210629
  Receipt Date: 20210804
  Transmission Date: 20211014
  Serious: Yes (Other)
  Sender: FDA-Public Use
  Company Number: US-TAIHO ONCOLOGY  INC-EU-2021-01900

PATIENT
  Age: 64 Year
  Sex: Male

DRUGS (2)
  1. AVASTIN [Suspect]
     Active Substance: BEVACIZUMAB
     Indication: RECTOSIGMOID CANCER
     Dosage: CYCLE 1
     Route: 042
     Dates: start: 2021
  2. LONSURF [Suspect]
     Active Substance: TIPIRACIL HYDROCHLORIDE\TRIFLURIDINE
     Indication: RECTOSIGMOID CANCER
     Dosage: CYCLE 1
     Route: 048
     Dates: start: 2021

REACTIONS (13)
  - Neuropathy peripheral [Unknown]
  - Insomnia [Unknown]
  - White blood cell count decreased [Unknown]
  - Gait inability [Unknown]
  - Constipation [Unknown]
  - Platelet count decreased [Unknown]
  - Red blood cell count decreased [Unknown]
  - Restless legs syndrome [Unknown]
  - Asthenia [Unknown]
  - Pain [Unknown]
  - Disease progression [Unknown]
  - Fatigue [Unknown]
  - Neutrophil count decreased [Unknown]

NARRATIVE: CASE EVENT DATE: 2021
